FAERS Safety Report 11098076 (Version 1)
Quarter: 2015Q2

REPORT INFORMATION
  Report Type: Spontaneous
  Country: US (occurrence: US)
  Receive Date: 20150507
  Receipt Date: 20150507
  Transmission Date: 20150821
  Serious: No
  Sender: FDA-Public Use
  Company Number: US-PFIZER INC-2015156089

PATIENT
  Sex: Female

DRUGS (1)
  1. CHANTIX [Suspect]
     Active Substance: VARENICLINE TARTRATE
     Dosage: UNK

REACTIONS (7)
  - Disturbance in attention [Unknown]
  - Aggression [Unknown]
  - Nightmare [Unknown]
  - Abdominal discomfort [Unknown]
  - Mood altered [Unknown]
  - Abnormal dreams [Unknown]
  - Memory impairment [Unknown]
